FAERS Safety Report 4636759-8 (Version None)
Quarter: 2005Q2

REPORT INFORMATION
  Report Type: 
  Country: None (occurrence: None)
  Receive Date: 20050415
  Receipt Date: 20041213
  Transmission Date: 20051028
  Serious: Yes (Hospitalization)
  Sender: FDA-Public Use
  Company Number: FR-ABBOTT-04P-056-0283852-00

PATIENT
  Age: 78 Year
  Sex: Male

DRUGS (4)
  1. LIPANTHYL [Suspect]
     Indication: HYPERCHOLESTEROLAEMIA
     Route: 048
     Dates: end: 20040913
  2. AMIODARONE HYDROCHLORIDE [Suspect]
     Indication: ARRHYTHMIA
     Dates: start: 20040911, end: 20040913
  3. FLUINDIONE [Suspect]
     Indication: DRUG USE FOR UNKNOWN INDICATION
     Dates: start: 20040911, end: 20040913
  4. SPIRONOLACTONE [Concomitant]
     Indication: DRUG USE FOR UNKNOWN INDICATION
     Dates: end: 20040913

REACTIONS (15)
  - ABDOMINAL PAIN [None]
  - AKINESIA [None]
  - ASTHENIA [None]
  - ATRIAL FIBRILLATION [None]
  - CHEST X-RAY ABNORMAL [None]
  - ELECTROCARDIOGRAM REPOLARISATION ABNORMALITY [None]
  - EXTENSOR PLANTAR RESPONSE [None]
  - HEPATITIS [None]
  - HYPERTONIA [None]
  - MITRAL VALVE INCOMPETENCE [None]
  - OCULAR ICTERUS [None]
  - PALPITATIONS [None]
  - RENAL CYST [None]
  - RENAL FAILURE ACUTE [None]
  - TREMOR [None]
